FAERS Safety Report 21008791 (Version 1)
Quarter: 2022Q2

REPORT INFORMATION
  Report Type: Spontaneous
  Country: US (occurrence: US)
  Receive Date: 20220627
  Receipt Date: 20220627
  Transmission Date: 20220720
  Serious: No
  Sender: FDA-Public Use
  Company Number: US-BRISTOL-MYERS SQUIBB COMPANY-2022-062742

PATIENT
  Age: 91 Year
  Sex: Male

DRUGS (1)
  1. REVLIMID [Suspect]
     Active Substance: LENALIDOMIDE
     Indication: Cellulitis
     Dosage: FREQUENCY : TAKE 1 CAPSULE BY MOUTH  EVERY OTHER DAY FOR 3 WEEKS ON, 1 WEEK OFF.
     Route: 048

REACTIONS (1)
  - Intentional product use issue [Unknown]
